FAERS Safety Report 16983083 (Version 1)
Quarter: 2019Q4

REPORT INFORMATION
  Report Type: Spontaneous
  Country: US (occurrence: US)
  Receive Date: 20191101
  Receipt Date: 20191101
  Transmission Date: 20200122
  Serious: No
  Sender: FDA-Public Use
  Company Number: US-009507513-1910USA006507

PATIENT
  Age: 28 Year
  Sex: Female

DRUGS (2)
  1. NEXPLANON [Suspect]
     Active Substance: ETONOGESTREL
     Dosage: ROD, 68 MILLIGRAM, ARM
     Dates: start: 20191001, end: 20191001
  2. NEXPLANON [Suspect]
     Active Substance: ETONOGESTREL
     Dosage: ROD, 68 MILLIGRAM, ARM
     Route: 059
     Dates: start: 20191001

REACTIONS (2)
  - No adverse event [Unknown]
  - Device deployment issue [Recovered/Resolved]

NARRATIVE: CASE EVENT DATE: 20191001
